FAERS Safety Report 6190810-5 (Version None)
Quarter: 2009Q2

REPORT INFORMATION
  Report Type: 
  Country: None (occurrence: None)
  Receive Date: 20090514
  Receipt Date: 20090507
  Transmission Date: 20091009
  Serious: Yes (Other)
  Sender: FDA-Public Use
  Company Number: PHHY2009CA17697

PATIENT
  Sex: Male

DRUGS (1)
  1. GLEEVEC [Suspect]
     Indication: DERMATOFIBROSARCOMA
     Dosage: 400 MG
     Route: 048
     Dates: start: 20081201

REACTIONS (1)
  - EYE DISORDER [None]
